FAERS Safety Report 7548453-4 (Version None)
Quarter: 2011Q2

REPORT INFORMATION
  Report Type: 
  Country: None (occurrence: None)
  Receive Date: 20110615
  Receipt Date: 20110526
  Transmission Date: 20111010
  Serious: Yes (Hospitalization)
  Sender: FDA-Public Use
  Company Number: US-BAYER-201037714NA

PATIENT
  Age: 18 Year
  Sex: Female
  Weight: 90.703 kg

DRUGS (5)
  1. YASMIN [Suspect]
     Indication: PREMENSTRUAL SYNDROME
     Dosage: UNK
     Dates: start: 20070101, end: 20070101
  2. ANTIBIOTICS [Concomitant]
  3. DROSPIRENONE AND ETHINYL ESTRADIOL [Suspect]
     Indication: PREMENSTRUAL SYNDROME
     Dosage: UNK
     Dates: start: 20070101, end: 20070101
  4. ORTHO TRI-CYCLEN [Concomitant]
     Dosage: UNK
     Dates: start: 20070501
  5. YAZ [Suspect]
     Indication: PREMENSTRUAL SYNDROME
     Dosage: UNK
     Dates: start: 20070101, end: 20070101

REACTIONS (3)
  - CHOLELITHIASIS [None]
  - INJURY [None]
  - PAIN [None]
